FAERS Safety Report 5707515-4 (Version None)
Quarter: 2008Q2

REPORT INFORMATION
  Report Type: 
  Country: None (occurrence: None)
  Receive Date: 20080416
  Receipt Date: 20080406
  Transmission Date: 20081010
  Serious: Yes (Life-Threatening, Other)
  Sender: FDA-Public Use
  Company Number: US-PFIZER INC-2008031450

PATIENT
  Sex: Male
  Weight: 65.909 kg

DRUGS (9)
  1. CHANTIX [Suspect]
     Indication: SMOKING CESSATION THERAPY
  2. NORCO [Suspect]
  3. TRAZODONE HCL [Suspect]
  4. HYDROCODONE BITARTRATE [Concomitant]
  5. MARINOL [Concomitant]
  6. NORVIR [Concomitant]
  7. TIPRANAVIR [Concomitant]
  8. SUSTIVA [Concomitant]
  9. TRUVADA [Concomitant]

REACTIONS (3)
  - DEPRESSION [None]
  - OVERDOSE [None]
  - SUICIDAL IDEATION [None]
